FAERS Safety Report 6661983-2 (Version None)
Quarter: 2010Q1

REPORT INFORMATION
  Report Type: 
  Country: None (occurrence: None)
  Receive Date: 20100331
  Receipt Date: 20091113
  Transmission Date: 20100710
  Serious: Yes (Other)
  Sender: FDA-Public Use
  Company Number: US-BRISTOL-MYERS SQUIBB COMPANY-14862452

PATIENT

DRUGS (5)
  1. ERBITUX [Suspect]
  2. AVASTIN [Suspect]
     Indication: COLON CANCER
  3. FLUOROURACIL [Suspect]
     Indication: COLON CANCER
  4. LEUCOVORIN CALCIUM [Suspect]
     Indication: COLON CANCER
  5. OXALIPLATIN [Suspect]
     Indication: COLON CANCER

REACTIONS (1)
  - DRUG INEFFECTIVE [None]
